FAERS Safety Report 6058058-2 (Version None)
Quarter: 2009Q1

REPORT INFORMATION
  Report Type: 
  Country: None (occurrence: None)
  Receive Date: 20090127
  Receipt Date: 20090122
  Transmission Date: 20090719
  Serious: Yes (Death, Hospitalization)
  Sender: FDA-Public Use
  Company Number: CERZ-1000463

PATIENT
  Age: 90 Year
  Sex: Female
  Weight: 66 kg

DRUGS (1)
  1. CEREZYME [Suspect]
     Indication: GAUCHER'S DISEASE
     Dosage: 2800 U, Q3W, INTRAVENOUS
     Route: 042
     Dates: start: 19941129, end: 20081201

REACTIONS (2)
  - FALL [None]
  - HIP FRACTURE [None]
